FAERS Safety Report 5891407-4 (Version None)
Quarter: 2008Q3

REPORT INFORMATION
  Report Type: 
  Country: None (occurrence: None)
  Receive Date: 20080922
  Receipt Date: 20080916
  Transmission Date: 20090109
  Serious: Yes (Other)
  Sender: FDA-Public Use
  Company Number: AU-MERCK-0808AUS00159

PATIENT
  Age: 42 Year
  Sex: Female
  Weight: 40 kg

DRUGS (4)
  1. ISENTRESS [Suspect]
     Indication: HIV INFECTION
     Route: 048
     Dates: start: 20080301
  2. STOCRIN [Concomitant]
     Indication: HIV INFECTION
     Route: 048
  3. CIPRAMIL [Concomitant]
     Route: 065
  4. ABACAVIR SULFATE [Concomitant]
     Indication: HIV INFECTION
     Route: 065

REACTIONS (2)
  - PALPITATIONS [None]
  - VENTRICULAR ARRHYTHMIA [None]
